FAERS Safety Report 4875696-0 (Version None)
Quarter: 2006Q1

REPORT INFORMATION
  Report Type: 
  Country: None (occurrence: None)
  Receive Date: 20060105
  Receipt Date: 20051220
  Transmission Date: 20060701
  Serious: Yes (Hospitalization)
  Sender: FDA-Public Use
  Company Number: B0404302A

PATIENT
  Age: 62 Year
  Sex: Female

DRUGS (2)
  1. LITHIUM CARBONATE [Suspect]
     Indication: BIPOLAR DISORDER
  2. OLANZAPINE [Suspect]
     Indication: HALLUCINATION

REACTIONS (11)
  - ACUTE PRERENAL FAILURE [None]
  - BLOOD GLUCOSE INCREASED [None]
  - DISORIENTATION [None]
  - DRUG INTERACTION [None]
  - DRUG LEVEL INCREASED [None]
  - EXTRAPYRAMIDAL DISORDER [None]
  - LOOSE ASSOCIATIONS [None]
  - PSYCHOMOTOR HYPERACTIVITY [None]
  - RED BLOOD CELL SEDIMENTATION RATE INCREASED [None]
  - SINUS BRADYCARDIA [None]
  - WHITE BLOOD CELL COUNT INCREASED [None]
